FAERS Safety Report 10157303 (Version 1)
Quarter: 2014Q2

REPORT INFORMATION
  Report Type: Spontaneous
  Country: US (occurrence: US)
  Receive Date: 20140507
  Receipt Date: 20140507
  Transmission Date: 20141212
  Serious: No
  Sender: FDA-Public Use
  Company Number: US-009507513-1404USA015292

PATIENT
  Sex: Female

DRUGS (1)
  1. IMPLANON [Suspect]
     Indication: CONTRACEPTION
     Dosage: 68 MG/ONCE EVERY THREE YEARS
     Route: 059
     Dates: start: 2009

REACTIONS (2)
  - Unintended pregnancy [Recovered/Resolved]
  - Medical device complication [Unknown]
